FAERS Safety Report 8471914-0 (Version None)
Quarter: 2012Q2

REPORT INFORMATION
  Report Type: 
  Country: None (occurrence: None)
  Receive Date: 20120323
  Receipt Date: 20111025
  Transmission Date: 20120825
  Serious: Yes (Other)
  Sender: FDA-Public Use
  Company Number: 163-21880-11103205

PATIENT
  Age: 71 Year
  Sex: Female
  Weight: 80.7 kg

DRUGS (2)
  1. REVLIMID [Suspect]
     Indication: MULTIPLE MYELOMA
     Dosage: 15 MG, DAILY X 14 DAYS, THEN OFF FOR 7 DAYS, PO, 10 MG, TIW X 21 SAYS, PO
     Route: 048
     Dates: start: 20110920
  2. REVLIMID [Suspect]
     Indication: MULTIPLE MYELOMA
     Dosage: 15 MG, DAILY X 14 DAYS, THEN OFF FOR 7 DAYS, PO, 10 MG, TIW X 21 SAYS, PO
     Route: 048
     Dates: start: 20110517

REACTIONS (1)
  - ATRIAL FIBRILLATION [None]
